FAERS Safety Report 16740791 (Version 1)
Quarter: 2019Q4

REPORT INFORMATION
  Report Type: Spontaneous
  Country: US (occurrence: US)
  Receive Date: 20190825
  Receipt Date: 20190825
  Transmission Date: 20200122
  Serious: No
  Sender: FDA-Public Use
  Company Number: None

PATIENT
  Age: 6 Week
  Sex: Female
  Weight: 4.5 kg

DRUGS (4)
  1. INFANTS GAS RELIEF DYE FREE [Suspect]
     Active Substance: DIMETHICONE
     Indication: FLATULENCE
     Dosage: ?          QUANTITY:0.3 ML;?
     Route: 048
     Dates: start: 20190721, end: 20190825
  2. UP AND UP INFANTS GAS RELIEF [Suspect]
     Active Substance: DIMETHICONE
     Indication: FLATULENCE
     Dosage: ?          QUANTITY:0.3 ML;?
     Route: 048
     Dates: start: 20190721, end: 20190825
  3. PROBIOTIC [Concomitant]
     Active Substance: PROBIOTICS NOS
  4. GRIPE WATER [Concomitant]
     Active Substance: DIETARY SUPPLEMENT

REACTIONS (4)
  - Rash papular [None]
  - Rash erythematous [None]
  - Rash [None]
  - Application site rash [None]

NARRATIVE: CASE EVENT DATE: 20190721
